FAERS Safety Report 15466052 (Version 1)
Quarter: 2018Q4

REPORT INFORMATION
  Report Type: Spontaneous
  Country: US (occurrence: US)
  Receive Date: 20181004
  Receipt Date: 20181004
  Transmission Date: 20190204
  Serious: No
  Sender: FDA-Public Use
  Company Number: US-GALDERMA-US18004087

PATIENT
  Age: 68 Year
  Sex: Female

DRUGS (3)
  1. LA MER [Concomitant]
     Indication: PRODUCT USED FOR UNKNOWN INDICATION
  2. MIRVASO [Suspect]
     Active Substance: BRIMONIDINE TARTRATE
     Indication: FLUSHING
     Dosage: 0.33%
     Route: 061
     Dates: start: 20180307, end: 20180312
  3. LA ROCHE SUNBLOCK [Concomitant]
     Indication: PROPHYLAXIS AGAINST SOLAR RADIATION

REACTIONS (6)
  - Overdose [Recovered/Resolved]
  - Skin burning sensation [Recovered/Resolved]
  - Flushing [Recovered/Resolved]
  - Inappropriate schedule of product administration [Recovered/Resolved]
  - Erythema [Recovered/Resolved]
  - Swelling face [Recovered/Resolved]

NARRATIVE: CASE EVENT DATE: 20180307
